FAERS Safety Report 8126664-7 (Version None)
Quarter: 2012Q1

REPORT INFORMATION
  Report Type: 
  Country: None (occurrence: None)
  Receive Date: 20120210
  Receipt Date: 20120131
  Transmission Date: 20120608
  Serious: No
  Sender: FDA-Public Use
  Company Number: US-BIOGENIDEC-2012BI004014

PATIENT
  Age: 28 Year
  Sex: Female

DRUGS (4)
  1. TYSABRI [Suspect]
     Route: 042
     Dates: start: 20111227
  2. AVONEX [Concomitant]
     Indication: MULTIPLE SCLEROSIS
     Route: 030
  3. TYSABRI [Suspect]
     Indication: MULTIPLE SCLEROSIS
     Route: 042
     Dates: start: 20080609, end: 20100608
  4. AVONEX [Concomitant]
     Route: 030
     Dates: start: 20040206

REACTIONS (6)
  - VOMITING [None]
  - NASOPHARYNGITIS [None]
  - EAR INFECTION [None]
  - INFLUENZA [None]
  - URINARY TRACT INFECTION [None]
  - PHARYNGITIS STREPTOCOCCAL [None]
